FAERS Safety Report 4375327-2 (Version None)
Quarter: 2004Q2

REPORT INFORMATION
  Report Type: 
  Country: None (occurrence: None)
  Receive Date: 20040607
  Receipt Date: 20030825
  Transmission Date: 20050107
  Serious: Yes (Other)
  Sender: FDA-Public Use
  Company Number: 345467

PATIENT
  Age: 24 Year
  Sex: Female

DRUGS (2)
  1. ACCUTANE [Suspect]
     Indication: DRUG USE FOR UNKNOWN INDICATION
     Dosage: ORAL
     Route: 048
     Dates: start: 20020615, end: 20021218
  2. BIRTH CONTROL PILLS (ORAL CONTRACEPTIVES NOS) [Concomitant]

REACTIONS (2)
  - ADVERSE EVENT [None]
  - DEPRESSION [None]
